FAERS Safety Report 9121528 (Version 2)
Quarter: 2013Q1

REPORT INFORMATION
  Report Type: Report from Study
  Country: US (occurrence: US)
  Receive Date: 20130227
  Receipt Date: 20130306
  Transmission Date: 20140127
  Serious: Yes (Life-Threatening)
  Sender: FDA-Public Use
  Company Number: US-MERCK-1302USA011197

PATIENT
  Sex: Female
  Weight: 48.5 kg

DRUGS (4)
  1. VORINOSTAT [Suspect]
     Indication: HAEMATOPOIETIC NEOPLASM
     Dosage: 400 MG, QD, DAYS 1-14
     Route: 048
     Dates: start: 20121011, end: 20121024
  2. VORINOSTAT [Suspect]
     Dosage: 400 MG, QD, DAYS 1-14
     Route: 048
     Dates: start: 20130207, end: 20130213
  3. MLN8237 [Suspect]
     Indication: HAEMATOPOIETIC NEOPLASM
     Dosage: 30 MG, BID ON DAYS 1-7
     Route: 048
     Dates: start: 20121011, end: 20121018
  4. MLN8237 [Suspect]
     Dosage: 30 MG, BID
     Route: 048
     Dates: start: 20130207, end: 20130213

REACTIONS (1)
  - Neutrophil count decreased [Not Recovered/Not Resolved]
